FAERS Safety Report 11122132 (Version 2)
Quarter: 2015Q3

REPORT INFORMATION
  Report Type: Spontaneous
  Country: US (occurrence: US)
  Receive Date: 20150519
  Receipt Date: 20150817
  Transmission Date: 20151125
  Serious: Yes (Hospitalization)
  Sender: FDA-Public Use
  Company Number: US-PFIZER INC-2015166614

PATIENT
  Age: 73 Year
  Sex: Male
  Weight: 88 kg

DRUGS (6)
  1. CHANTIX [Suspect]
     Active Substance: VARENICLINE TARTRATE
     Dosage: UNK
     Dates: start: 2015, end: 2015
  2. HYDROCODONE [Suspect]
     Active Substance: HYDROCODONE
     Indication: PAIN
     Dosage: TWO TABLETS 5/325MG EVERY 4-6 HOURS
     Route: 048
     Dates: start: 2015, end: 2015
  3. HYDROCODONE [Suspect]
     Active Substance: HYDROCODONE
     Dosage: 5/325MG  4 TIMES A DAY)
     Dates: start: 2015, end: 2015
  4. CHANTIX [Suspect]
     Active Substance: VARENICLINE TARTRATE
     Dosage: (1.71 MG ,1 MG)
     Dates: start: 2015, end: 2015
  5. PREDNISONE. [Concomitant]
     Active Substance: PREDNISONE
     Indication: SURGERY
     Dosage: 20 MG, UNK
     Dates: start: 20150513, end: 20150524
  6. CHANTIX [Suspect]
     Active Substance: VARENICLINE TARTRATE
     Indication: SMOKING CESSATION THERAPY
     Dosage: 2 MG, 1X/DAY
     Route: 048
     Dates: start: 2015, end: 2015

REACTIONS (2)
  - Back disorder [Not Recovered/Not Resolved]
  - Rash [Recovered/Resolved]

NARRATIVE: CASE EVENT DATE: 20150429
